FAERS Safety Report 5005602-X (Version None)
Quarter: 2006Q2

REPORT INFORMATION
  Report Type: 
  Country: None (occurrence: None)
  Receive Date: 20060515
  Receipt Date: 20060510
  Transmission Date: 20061013
  Serious: Yes (Other)
  Sender: FDA-Public Use
  Company Number: GB-2005-004880

PATIENT
  Age: 23 Year
  Sex: Female
  Weight: 50 kg

DRUGS (1)
  1. YASMIN [Suspect]
     Indication: ORAL CONTRACEPTION
     Dosage: 1 TAB S), 1X/DAY, ORAL
     Route: 048
     Dates: start: 20040901, end: 20050301

REACTIONS (3)
  - MALAISE [None]
  - METRORRHAGIA [None]
  - SKIN SWELLING [None]
